FAERS Safety Report 10101716 (Version 1)
Quarter: 2014Q2

REPORT INFORMATION
  Report Type: Spontaneous
  Country: FR (occurrence: FR)
  Receive Date: 20140424
  Receipt Date: 20140424
  Transmission Date: 20141212
  Serious: Yes (Hospitalization, Other)
  Sender: FDA-Public Use
  Company Number: FR-PFIZER INC-2014112199

PATIENT
  Sex: Female

DRUGS (6)
  1. LYRICA [Suspect]
     Indication: NEURALGIA
     Dosage: UNK
     Route: 048
     Dates: start: 2010
  2. LYRICA [Suspect]
     Indication: GUILLAIN-BARRE SYNDROME
     Dosage: 0.4 X 3 PER DAY
     Route: 048
  3. LYRICA [Suspect]
     Dosage: 300 MG, DAILY
     Route: 048
  4. LYRICA [Suspect]
     Dosage: 25 MG, 3X/DAY
     Route: 048
  5. RIVOTRIL [Concomitant]
  6. VALIUM [Concomitant]

REACTIONS (16)
  - Aggression [Unknown]
  - Behavioural and psychiatric symptoms of dementia [Unknown]
  - Drug withdrawal syndrome [Unknown]
  - Amnesia [Unknown]
  - Muscle spasms [Unknown]
  - Mydriasis [Unknown]
  - Heart rate increased [Unknown]
  - Crying [Unknown]
  - Emotional distress [Unknown]
  - Agitation [Unknown]
  - Nervous system disorder [Unknown]
  - Psychiatric symptom [Unknown]
  - Suicide attempt [Unknown]
  - Suicidal ideation [Unknown]
  - Panic reaction [Unknown]
  - Personality disorder [Unknown]
